FAERS Safety Report 9611858 (Version 2)
Quarter: 2013Q4

REPORT INFORMATION
  Report Type: Spontaneous
  Country: US (occurrence: US)
  Receive Date: 20131010
  Receipt Date: 20131010
  Transmission Date: 20140711
  Serious: No
  Sender: FDA-Public Use
  Company Number: US-B.I. PHARMACEUTICALS,INC./RIDGEFIELD-2013-BI-29972BP

PATIENT
  Age: 27 Year
  Sex: Male

DRUGS (5)
  1. DULCOLAX (BISACODYL) [Suspect]
     Indication: CONSTIPATION
     Dosage: 10 MG
     Route: 054
     Dates: start: 201301
  2. COLACE [Concomitant]
     Indication: CONSTIPATION
     Dosage: 2 ANZ
     Route: 048
     Dates: start: 201301
  3. SENOKOT [Concomitant]
     Indication: CONSTIPATION
     Dosage: 2 ANZ
     Route: 048
     Dates: start: 201301
  4. DITROPAN [Concomitant]
     Indication: SPINAL CORD INJURY
     Dosage: 20 MG
     Route: 048
     Dates: start: 201301
  5. ASPIRIN [Concomitant]
     Indication: SPINAL CORD INJURY
     Dosage: 81 MG
     Route: 048
     Dates: start: 201301

REACTIONS (3)
  - Gastrointestinal motility disorder [Not Recovered/Not Resolved]
  - Drug effect decreased [Not Recovered/Not Resolved]
  - Product quality issue [Recovered/Resolved]
